FAERS Safety Report 5672134-5 (Version None)
Quarter: 2008Q1

REPORT INFORMATION
  Report Type: 
  Country: None (occurrence: None)
  Receive Date: 20080319
  Receipt Date: 20080311
  Transmission Date: 20080703
  Serious: No
  Sender: FDA-Public Use
  Company Number: DE-ELI_LILLY_AND_COMPANY-DE200803002212

PATIENT
  Age: 53 Year
  Sex: Female

DRUGS (6)
  1. ZYPREXA [Suspect]
     Indication: DEPRESSIVE DELUSION
     Dosage: 10 MG, DAILY (1/D)
     Route: 048
     Dates: start: 20080128
  2. ZYPREXA [Suspect]
     Dosage: 20 MG, DAILY (1/D)
     Route: 048
  3. CIPRALEX [Concomitant]
  4. OMEPRAZOLE [Concomitant]
  5. ENAHEXAL [Concomitant]
  6. BUDENOFALK [Concomitant]

REACTIONS (1)
  - EOSINOPHILIA [None]
